FAERS Safety Report 22345337 (Version 2)
Quarter: 2023Q2

REPORT INFORMATION
  Report Type: Spontaneous
  Country: US (occurrence: US)
  Receive Date: 20230519
  Receipt Date: 20230526
  Transmission Date: 20230722
  Serious: Yes (Other)
  Sender: FDA-Public Use
  Company Number: US-TEVA-2023-US-2888726

PATIENT
  Sex: Male

DRUGS (2)
  1. HYDROXYZINE HYDROCHLORIDE [Suspect]
     Active Substance: HYDROXYZINE HYDROCHLORIDE
     Indication: Panic attack
     Route: 060
     Dates: start: 20210923
  2. HYDROXYZINE HYDROCHLORIDE [Suspect]
     Active Substance: HYDROXYZINE HYDROCHLORIDE
     Indication: Anxiety

REACTIONS (8)
  - Burn oral cavity [Unknown]
  - Chemical burn [Not Recovered/Not Resolved]
  - Burns second degree [Unknown]
  - Tooth injury [Unknown]
  - Ulcer [Not Recovered/Not Resolved]
  - Dental caries [Unknown]
  - Incorrect route of product administration [Unknown]
  - Product use in unapproved indication [Unknown]
